FAERS Safety Report 16625079 (Version 1)
Quarter: 2019Q3

REPORT INFORMATION
  Report Type: Spontaneous
  Country: US (occurrence: US)
  Receive Date: 20190724
  Receipt Date: 20190724
  Transmission Date: 20191004
  Serious: Yes (Hospitalization)
  Sender: FDA-Public Use
  Company Number: None

PATIENT
  Age: 61 Year
  Sex: Female

DRUGS (8)
  1. SUCRALFATE. [Concomitant]
     Active Substance: SUCRALFATE
     Dates: start: 20190131
  2. IRON [Concomitant]
     Active Substance: IRON
     Dates: start: 20190723
  3. VALSART/HCTZ [Concomitant]
     Dates: start: 20190131
  4. METOPROL SUC [Concomitant]
     Dates: start: 20190131
  5. TYLENOL [Concomitant]
     Active Substance: ACETAMINOPHEN
     Dates: start: 20190723
  6. ATORVASTATIN [Concomitant]
     Active Substance: ATORVASTATIN
     Dates: start: 20190131
  7. DULOXETINE. [Concomitant]
     Active Substance: DULOXETINE
     Dates: start: 20190528
  8. XELJANZ XR [Suspect]
     Active Substance: TOFACITINIB CITRATE
     Indication: RHEUMATOID ARTHRITIS
     Route: 048
     Dates: start: 20180912

REACTIONS (2)
  - Ulcer haemorrhage [None]
  - Rheumatoid arthritis [None]
